FAERS Safety Report 4352743-6 (Version None)
Quarter: 2004Q2

REPORT INFORMATION
  Report Type: 
  Country: None (occurrence: None)
  Receive Date: 20040429
  Receipt Date: 20040414
  Transmission Date: 20050107
  Serious: Yes (Hospitalization, Other)
  Sender: FDA-Public Use
  Company Number: DEU-2004-0000808

PATIENT
  Age: 55 Year
  Sex: Female

DRUGS (6)
  1. MORPHINE SULFATE [Suspect]
     Dosage: 30 + 300 + 500 MG, DAILY, ORAL
     Route: 048
  2. FENTANYL [Suspect]
     Indication: CANCER PAIN
     Dosage: 125 + 175 MCG/HR, Q72HR, TRANSDERMAL
     Route: 062
  3. ALPRAZOLAM [Concomitant]
  4. GABAPENTIN [Concomitant]
  5. FLUOXETINE [Concomitant]
  6. TRAZODONE HCL [Concomitant]

REACTIONS (21)
  - ABDOMINAL PAIN [None]
  - ABDOMINAL WALL ABSCESS [None]
  - ASTERIXIS [None]
  - BLOOD ALBUMIN DECREASED [None]
  - BLOOD MAGNESIUM DECREASED [None]
  - BLOOD POTASSIUM DECREASED [None]
  - CLONIC CONVULSION [None]
  - CONFUSIONAL STATE [None]
  - CONSTIPATION [None]
  - DECREASED ACTIVITY [None]
  - DEHYDRATION [None]
  - DELIRIUM [None]
  - DELUSION [None]
  - DISORIENTATION [None]
  - DISTURBANCE IN ATTENTION [None]
  - MYOCLONUS [None]
  - NAUSEA [None]
  - PERSEVERATION [None]
  - PYREXIA [None]
  - SEDATION [None]
  - THINKING ABNORMAL [None]
